FAERS Safety Report 6210113-X (Version None)
Quarter: 2009Q2

REPORT INFORMATION
  Report Type: 
  Country: None (occurrence: None)
  Receive Date: 20090527
  Receipt Date: 20090520
  Transmission Date: 20091009
  Serious: Yes (Other)
  Sender: FDA-Public Use
  Company Number: PHH02009AT02110

PATIENT
  Age: 84 Year
  Sex: Male

DRUGS (4)
  1. LUCENTIS [Suspect]
     Indication: CHOROIDAL NEOVASCULARISATION
     Dosage: 0.5 MG DAILY EY
     Route: 047
     Dates: start: 20090209, end: 20090209
  2. LUCENTIS [Suspect]
     Indication: MACULAR DEGENERATION
     Dosage: 0.5 MG DAILY EY
     Route: 047
     Dates: start: 20090209, end: 20090209
  3. PLACEBO [Suspect]
     Indication: CHOROIDAL NEOVASCULARISATION
  4. PLACEBO [Suspect]
     Indication: MACULAR DEGENERATION

REACTIONS (2)
  - INTRAOCULAR PRESSURE INCREASED [None]
  - RETINAL ARTERY OCCLUSION [None]
